FAERS Safety Report 9689049 (Version 3)
Quarter: 2014Q1

REPORT INFORMATION
  Report Type: Report from Study
  Country: US (occurrence: US)
  Receive Date: 20131114
  Receipt Date: 20140218
  Transmission Date: 20141002
  Serious: Yes (Hospitalization, Other)
  Sender: FDA-Public Use
  Company Number: US-US-EMD SERONO, INC.-7248623

PATIENT
  Sex: Male

DRUGS (1)
  1. REBIF [Suspect]
     Indication: MULTIPLE SCLEROSIS
     Route: 058
     Dates: start: 20130209

REACTIONS (9)
  - Peripheral vascular disorder [Not Recovered/Not Resolved]
  - Gangrene [Recovering/Resolving]
  - Localised infection [Recovering/Resolving]
  - Pain in extremity [Unknown]
  - Cyst [Not Recovered/Not Resolved]
  - Nasal polyps [Recovered/Resolved]
  - Insomnia [Unknown]
  - Muscle atrophy [Not Recovered/Not Resolved]
  - Paraesthesia [Not Recovered/Not Resolved]
